FAERS Safety Report 15555002 (Version 1)
Quarter: 2018Q4

REPORT INFORMATION
  Report Type: Spontaneous
  Country: US (occurrence: US)
  Receive Date: 20181022
  Receipt Date: 20181022
  Transmission Date: 20190205
  Serious: Yes (Hospitalization)
  Sender: FDA-Public Use
  Company Number: None

PATIENT
  Age: 52 Year
  Sex: Female

DRUGS (5)
  1. THERATEA [Concomitant]
  2. HUMIRA [Suspect]
     Active Substance: ADALIMUMAB
     Indication: RHEUMATOID ARTHRITIS
     Route: 058
  3. METHROTREXATE [Concomitant]
     Active Substance: METHOTREXATE
  4. ATENOLOL. [Concomitant]
     Active Substance: ATENOLOL
  5. LEFLLUOMIDE [Concomitant]

REACTIONS (2)
  - Tendon rupture [None]
  - Rheumatoid arthritis [None]

NARRATIVE: CASE EVENT DATE: 20180920
